FAERS Safety Report 10050511 (Version 2)
Quarter: 2014Q2

REPORT INFORMATION
  Report Type: Spontaneous
  Country: US (occurrence: US)
  Receive Date: 20140401
  Receipt Date: 20140401
  Transmission Date: 20141212
  Serious: No
  Sender: FDA-Public Use
  Company Number: US-ASTRAZENECA-2013SE86715

PATIENT
  Age: 57 Year
  Sex: Female
  Weight: 60.8 kg

DRUGS (14)
  1. NEXIUM [Suspect]
     Indication: ABDOMINAL DISCOMFORT
     Route: 048
     Dates: start: 2007, end: 20131122
  2. SIMVASTATIN [Concomitant]
     Indication: MIGRAINE
     Route: 048
     Dates: start: 2013
  3. ADVAIR [Concomitant]
     Route: 055
     Dates: start: 2013
  4. TOPIRAMATE [Concomitant]
     Indication: BLOOD CHOLESTEROL INCREASED
     Route: 048
     Dates: start: 2013
  5. LOROTAB [Concomitant]
     Indication: PAIN
     Route: 048
  6. CLONAZEPAM [Concomitant]
     Indication: NERVE INJURY
     Route: 048
  7. VENLAFAXINE [Concomitant]
     Route: 048
  8. TIZANIDINE [Concomitant]
     Route: 048
  9. TRAZADONE [Concomitant]
     Indication: SLEEP DISORDER
     Route: 048
  10. GABAPENTIN [Concomitant]
     Route: 048
  11. FLUTICASONE [Concomitant]
     Indication: SINUS DISORDER
     Route: 048
  12. ASPIRIN [Concomitant]
     Route: 048
  13. FORTEO [Concomitant]
     Indication: OSTEOPOROSIS
     Route: 058
     Dates: start: 2013
  14. CITRACAL AND VITAMIN D3 [Concomitant]
     Indication: OSTEOPOROSIS
     Dosage: BID
     Route: 048
     Dates: start: 2013

REACTIONS (6)
  - Gastric disorder [Not Recovered/Not Resolved]
  - Osteoporosis [Not Recovered/Not Resolved]
  - Chronic obstructive pulmonary disease [Not Recovered/Not Resolved]
  - Gastroenteritis viral [Recovered/Resolved]
  - Intentional product misuse [Unknown]
  - Drug dose omission [Unknown]
